FAERS Safety Report 8446554 (Version 2)
Quarter: 2012Q4

REPORT INFORMATION
  Report Type: Spontaneous
  Country: DE (occurrence: None)
  Receive Date: 20120301
  Receipt Date: 20120906
  Transmission Date: 20130627
  Serious: Yes (Other)
  Sender: FDA-Public Use
  Company Number: EU-2011-10243

PATIENT
  Sex: Female
  Weight: 45 kg

DRUGS (23)
  1. SAMSCA [Suspect]
     Indication: INAPPROPRIATE ANTIDIURETIC HORMONE SECRETION
     Route: 048
     Dates: start: 20110421, end: 20110426
  2. SAMSCA [Suspect]
     Indication: INAPPROPRIATE ANTIDIURETIC HORMONE SECRETION
     Route: 048
     Dates: start: 20110427
  3. AMIODIPINE (AMIODIPINE) [Concomitant]
  4. UNACID PD (SULTAMICILLIN TOSILATE) [Concomitant]
  5. ATACAND [Concomitant]
  6. LEVOTHYROXINE SODIUM [Concomitant]
  7. FLUTICASONE PROPIONATE\SALMETEROL XINAFOATE [Concomitant]
  8. SPIRIVA [Concomitant]
  9. CODEINE SULFATE [Concomitant]
  10. GABENTIN (GABAPENTIN) [Concomitant]
  11. FOSTER (BECLOMETASONE DIPROPIONATE, FORMOTEROL FUMARATE) [Concomitant]
  12. ARIEVERT (CINNARIZINE, DIMENHYDRINATE) [Concomitant]
  13. FRAGMIN [Concomitant]
  14. THEOPHYLLINE [Concomitant]
  15. NOVAMINSULFON (NOVAMINSULFON) [Concomitant]
  16. SODIUM CHLORIDE [Concomitant]
  17. RINGER  (CALCIUM CHLORIDE DIHYDRATE, POTASSIUM CHLORIDE, SODIUM CHLORIDE) [Concomitant]
  18. ASPIRIN [Concomitant]
  19. NOVALGIN (METAMIZOLE SODIUM) [Concomitant]
  20. TRAMADOL HYDROCHLORIDE [Concomitant]
  21. PANTOPRAZOLE [Concomitant]
  22. EBRANTIL (URAPIDIL) [Concomitant]
  23. SALINE (SALINE) [Concomitant]

REACTIONS (10)
  - Acute myocardial infarction [None]
  - Hypertensive crisis [None]
  - Fall [None]
  - Rib fracture [None]
  - Hyperventilation [None]
  - Depressed mood [None]
  - Tearfulness [None]
  - Urinary tract infection [None]
  - Wrong technique in drug usage process [None]
  - Respiratory tract infection [None]
